FAERS Safety Report 15213054 (Version 2)
Quarter: 2020Q2

REPORT INFORMATION
  Report Type: Spontaneous
  Country: CZ (occurrence: CZ)
  Receive Date: 20180730
  Receipt Date: 20200618
  Transmission Date: 20200713
  Serious: Yes (Other)
  Sender: FDA-Public Use
  Company Number: CZ-ACCORD-070271

PATIENT
  Age: 55 Year
  Sex: Male

DRUGS (3)
  1. FOLIC ACID. [Concomitant]
     Active Substance: FOLIC ACID
  2. PREDNISONE. [Suspect]
     Active Substance: PREDNISONE
     Indication: SARCOIDOSIS
     Dosage: SUBSEQUENT DOSE DECREASE UP TO 5 MG EVERY 14 DAYS, 30 MG, QD
     Route: 048
     Dates: start: 201505
  3. METHOTREXATE. [Suspect]
     Active Substance: METHOTREXATE
     Indication: SARCOIDOSIS
     Dosage: 10 MG, QW
     Route: 058
     Dates: start: 201505, end: 201506

REACTIONS (2)
  - Polyneuropathy [Unknown]
  - Cataract [Unknown]
